FAERS Safety Report 13600322 (Version 2)
Quarter: 2017Q3

REPORT INFORMATION
  Report Type: Spontaneous
  Country: US (occurrence: US)
  Receive Date: 20170601
  Receipt Date: 20170707
  Transmission Date: 20171127
  Serious: No
  Sender: FDA-Public Use
  Company Number: US-PFIZER INC-2017236050

PATIENT
  Age: 50 Year
  Sex: Male
  Weight: 73 kg

DRUGS (6)
  1. ADVIL [Suspect]
     Active Substance: IBUPROFEN
     Indication: BONE DISORDER
     Dosage: UNK, 2X/DAY
  2. LOSARTAN. [Concomitant]
     Active Substance: LOSARTAN
     Indication: HYPERTENSION
     Dosage: 40 MG, DAILY
  3. ADVIL [Suspect]
     Active Substance: IBUPROFEN
     Indication: JOINT INJURY
     Dosage: 600 MG, 2X/DAY (200MG TABLET, THREE LIQUIGELS, EVERY 12HRS)
  4. ADVIL [Suspect]
     Active Substance: IBUPROFEN
     Indication: ARTHRITIS
     Dosage: UNK, 1X/DAY
  5. SUBOXONE [Concomitant]
     Active Substance: BUPRENORPHINE HYDROCHLORIDE\NALOXONE HYDROCHLORIDE
     Indication: HYPERTENSION
     Dosage: 8 MG, 1X/DAY
  6. ZYRTEC [Concomitant]
     Active Substance: CETIRIZINE HYDROCHLORIDE
     Indication: HYPERSENSITIVITY
     Dosage: 10 MG, DAILY

REACTIONS (7)
  - Product taste abnormal [Unknown]
  - Dysgeusia [Unknown]
  - Oral discomfort [Not Recovered/Not Resolved]
  - Drug hypersensitivity [Unknown]
  - Wrong technique in product usage process [Unknown]
  - Throat irritation [Recovered/Resolved]
  - Intentional product use issue [Not Recovered/Not Resolved]

NARRATIVE: CASE EVENT DATE: 201705
